FAERS Safety Report 5709299-2 (Version None)
Quarter: 2008Q2

REPORT INFORMATION
  Report Type: 
  Country: None (occurrence: None)
  Receive Date: 20080418
  Receipt Date: 20080408
  Transmission Date: 20081010
  Serious: Yes (Other)
  Sender: FDA-Public Use
  Company Number: JP-ELI_LILLY_AND_COMPANY-JP200712005268

PATIENT
  Age: 63 Year
  Sex: Female

DRUGS (12)
  1. GEMZAR [Suspect]
     Indication: PANCREATIC CARCINOMA
     Dosage: 1000 MG/M2, UNK
     Route: 042
     Dates: start: 20070101, end: 20071219
  2. AMARYL [Concomitant]
     Indication: DIABETES MELLITUS
     Dosage: 3 MG, DAILY (1/D)
     Route: 048
  3. LOPEMIN [Concomitant]
     Dosage: 1 MG, 2/D
     Route: 048
  4. ADSORBIN [Concomitant]
     Dosage: 1 G, 3/D
     Route: 048
  5. LAC B [Concomitant]
     Dosage: 1 G, 3/D
     Route: 048
  6. BASEN [Concomitant]
     Dosage: 0.2 MG, 3/D
     Route: 048
  7. LOXONIN [Concomitant]
     Dosage: 60 MG, 2/D
     Route: 048
  8. ALTAT [Concomitant]
     Dosage: 75 MG, 2/D
     Route: 048
  9. METOCLOPRAMIDE HCL [Concomitant]
     Dosage: 5 MG, 3/D
     Route: 048
  10. COLONEL [Concomitant]
     Dosage: 500 MG, 3/D
     Route: 048
  11. KYTRIL [Concomitant]
     Dosage: 1 D/F, DAILY (1/D)
     Route: 065
  12. DECADRON [Concomitant]
     Dosage: 8 MG, DAILY (1/D)
     Route: 065

REACTIONS (4)
  - CHOLELITHIASIS [None]
  - HEPATIC STEATOSIS [None]
  - LYMPHADENOPATHY [None]
  - STENT OCCLUSION [None]
